FAERS Safety Report 5647033-5 (Version None)
Quarter: 2008Q1

REPORT INFORMATION
  Report Type: 
  Country: None (occurrence: None)
  Receive Date: 20080303
  Receipt Date: 20080227
  Transmission Date: 20080703
  Serious: Yes (Hospitalization)
  Sender: FDA-Public Use
  Company Number: MY-ASTRAZENECA-2008AP01456

PATIENT
  Age: 20051 Day
  Sex: Female
  Weight: 52 kg

DRUGS (1)
  1. SYMBICORT [Suspect]
     Indication: ASTHMA
     Dosage: 160/4.5 2 PUFFS BID
     Route: 055
     Dates: start: 20080226, end: 20080226

REACTIONS (2)
  - ASTHMA [None]
  - EYE SWELLING [None]
